FAERS Safety Report 12607830 (Version 1)
Quarter: 2016Q3

REPORT INFORMATION
  Report Type: Report from Study
  Country: US (occurrence: US)
  Receive Date: 20160729
  Receipt Date: 20160729
  Transmission Date: 20161109
  Serious: Yes (Other)
  Sender: FDA-Public Use
  Company Number: US-MYLANLABS-2015M1024560

PATIENT

DRUGS (1)
  1. FONDAPARINUX [Suspect]
     Active Substance: FONDAPARINUX
     Indication: FACTOR V DEFICIENCY
     Dosage: 7.5MG/0.6ML
     Route: 065
     Dates: start: 201206

REACTIONS (2)
  - Thrombosis [Unknown]
  - Memory impairment [Unknown]
